FAERS Safety Report 8916709 (Version 1)
Quarter: 2012Q4

REPORT INFORMATION
  Report Type: 
  Country: US (occurrence: US)
  Receive Date: 20121120
  Receipt Date: 20121120
  Transmission Date: 20130627
  Serious: Yes (Other)
  Sender: FDA-Public Use
  Company Number: US-009507513-1211USA007246

PATIENT

DRUGS (8)
  1. TEMOZOLOMIDE [Suspect]
     Indication: MALIGNANT GLIOMA
     Dosage: 75 mg/m2
     Route: 048
  2. ARSENIC TRIOXIDE [Suspect]
     Indication: MALIGNANT GLIOMA
     Dosage: 0.2 mg/kg
  3. ARSENIC TRIOXIDE [Suspect]
     Dosage: UNK, biw
  4. THERAPEUTIC RADIOPHARMACEUTICAL (UNSPECIFIED) [Suspect]
     Indication: MALIGNANT GLIOMA
     Dosage: 59-61 Gy in 28-33 fractions
  5. PROCHLORPERAZINE [Concomitant]
  6. SEROTONIN [Concomitant]
  7. POTASSIUM (UNSPECIFIED) [Concomitant]
  8. MAGNESIUM (UNSPECIFIED) [Concomitant]

REACTIONS (1)
  - Hepatic enzyme increased [Unknown]
